FAERS Safety Report 18661588 (Version 1)
Quarter: 2020Q4

REPORT INFORMATION
  Report Type: Spontaneous
  Country: DE (occurrence: TW)
  Receive Date: 20201224
  Receipt Date: 20201224
  Transmission Date: 20210114
  Serious: Yes (Other)
  Sender: FDA-Public Use
  Company Number: TW-ELI_LILLY_AND_COMPANY-TW202012011915

PATIENT
  Age: 57 Year
  Sex: Male
  Weight: 54 kg

DRUGS (10)
  1. 5 FU [Concomitant]
     Active Substance: FLUOROURACIL
     Dosage: 1216 MG, UNKNOWN
     Dates: start: 20190102
  2. ERBITUX [Suspect]
     Active Substance: CETUXIMAB
     Dosage: 700 MG, UNKNOWN
     Route: 041
     Dates: start: 20181208
  3. KEMOPLAT [Concomitant]
     Active Substance: CISPLATIN
     Dosage: 90 MG, UNKNOWN
     Route: 041
     Dates: start: 20181208
  4. ERBITUX [Suspect]
     Active Substance: CETUXIMAB
     Indication: ORAL CAVITY CANCER METASTATIC
     Dosage: 700 MG, UNKNOWN
     Route: 041
     Dates: start: 20181108
  5. KEMOPLAT [Concomitant]
     Active Substance: CISPLATIN
     Dosage: 90 MG, UNKNOWN
     Route: 041
     Dates: start: 20190102
  6. KEMOPLAT [Concomitant]
     Active Substance: CISPLATIN
     Indication: ORAL CAVITY CANCER METASTATIC
     Dosage: 51-52.2 MG (50MG/50ML/VIAL)
     Route: 041
     Dates: start: 20160826, end: 20160929
  7. 5 FU [Concomitant]
     Active Substance: FLUOROURACIL
     Indication: ORAL CAVITY CANCER METASTATIC
     Dosage: 1200 MG, UNKNOWN
     Dates: start: 20181108
  8. 5 FU [Concomitant]
     Active Substance: FLUOROURACIL
     Dosage: 1225 MG, UNKNOWN
     Dates: start: 20181208
  9. ERBITUX [Suspect]
     Active Substance: CETUXIMAB
     Dosage: 700 MG, UNKNOWN
     Route: 041
     Dates: start: 20190102, end: 20190102
  10. KEMOPLAT [Concomitant]
     Active Substance: CISPLATIN
     Dosage: 100 MG, UNKNOWN
     Route: 041
     Dates: start: 20181108

REACTIONS (7)
  - Stomatitis [Unknown]
  - Cough [Unknown]
  - Fatigue [Unknown]
  - Palmar-plantar erythrodysaesthesia syndrome [Unknown]
  - Dyspnoea [Unknown]
  - Alopecia [Unknown]
  - Nausea [Recovering/Resolving]

NARRATIVE: CASE EVENT DATE: 201811
